FAERS Safety Report 26156866 (Version 1)
Quarter: 2025Q4

REPORT INFORMATION
  Report Type: Spontaneous
  Country: US (occurrence: None)
  Receive Date: 20251212
  Receipt Date: 20251212
  Transmission Date: 20260117
  Serious: Yes (Hospitalization)
  Sender: FDA-CTU
  Company Number: None

PATIENT
  Sex: Male

DRUGS (22)
  1. OMEPRAZOLE [Suspect]
     Active Substance: OMEPRAZOLE
     Dosage: FREQUENCY : DAILY;
     Route: 048
  2. HYDRALAZINE [Concomitant]
     Active Substance: HYDRALAZINE HYDROCHLORIDE
  3. LINZESS [Concomitant]
     Active Substance: LINACLOTIDE
  4. Insulin glargine U-100 [Concomitant]
  5. QUETIAPINE [Concomitant]
     Active Substance: QUETIAPINE
  6. NOVOLOG [Concomitant]
     Active Substance: INSULIN ASPART
  7. Prucalopride 2 mg [Concomitant]
  8. Melatonin 5 mg [Concomitant]
  9. HYDROCORTISONE [Concomitant]
     Active Substance: HYDROCORTISONE
  10. KETOCONAZOLE [Concomitant]
     Active Substance: KETOCONAZOLE
  11. Isosorbide dinitrate 40 mg [Concomitant]
  12. FLUTICASONE [Concomitant]
     Active Substance: FLUTICASONE
  13. B-complex capsules [Concomitant]
  14. Bumetadine 1 mg [Concomitant]
  15. MICONAZOLE [Concomitant]
     Active Substance: MICONAZOLE
  16. DOXAZOSIN [Concomitant]
     Active Substance: DOXAZOSIN MESYLATE
  17. FINASTERIDE [Concomitant]
     Active Substance: FINASTERIDE
  18. LABETALOL HYDROCHLORIDE [Concomitant]
     Active Substance: LABETALOL HYDROCHLORIDE
  19. AMLODIPINE BESYLATE [Concomitant]
     Active Substance: AMLODIPINE BESYLATE
  20. TAMSULOSIN [Concomitant]
     Active Substance: TAMSULOSIN
  21. LEVETIRACETAM [Concomitant]
     Active Substance: LEVETIRACETAM
  22. Mycophenolic acid 180 mg DR tablets [Concomitant]

REACTIONS (1)
  - Hospitalisation [None]
